FAERS Safety Report 9710652 (Version 1)
Quarter: 2013Q4

REPORT INFORMATION
  Report Type: Spontaneous
  Country: US (occurrence: US)
  Receive Date: 20131126
  Receipt Date: 20131126
  Transmission Date: 20140711
  Serious: No
  Sender: FDA-Public Use
  Company Number: US-BRISTOL-MYERS SQUIBB COMPANY-19002468

PATIENT
  Age: 64 Year
  Sex: Male

DRUGS (1)
  1. BYDUREON 2MG SUSPENSION [Suspect]
     Indication: TYPE 2 DIABETES MELLITUS
     Dosage: INJECTION
     Route: 058

REACTIONS (1)
  - Injection site swelling [Not Recovered/Not Resolved]
